FAERS Safety Report 14956740 (Version 1)
Quarter: 2018Q2

REPORT INFORMATION
  Report Type: Spontaneous
  Country: US (occurrence: US)
  Receive Date: 20180531
  Receipt Date: 20180531
  Transmission Date: 20180711
  Serious: No
  Sender: FDA-Public Use
  Company Number: US-NOVEN PHARMACEUTICALS, INC.-US2017001202

PATIENT

DRUGS (1)
  1. DAYTRANA [Suspect]
     Active Substance: METHYLPHENIDATE
     Indication: ATTENTION DEFICIT/HYPERACTIVITY DISORDER
     Dosage: 10 MG, UNK
     Route: 062
     Dates: start: 20171004

REACTIONS (5)
  - Product quality issue [Not Recovered/Not Resolved]
  - Drug administration error [Unknown]
  - Product adhesion issue [Not Recovered/Not Resolved]
  - Application site pain [Unknown]
  - Off label use [Unknown]

NARRATIVE: CASE EVENT DATE: 201710
